FAERS Safety Report 14893096 (Version 1)
Quarter: 2018Q2

REPORT INFORMATION
  Report Type: Report from Study
  Country: DE (occurrence: DE)
  Receive Date: 20180514
  Receipt Date: 20180514
  Transmission Date: 20180711
  Serious: Yes (Other)
  Sender: FDA-Public Use
  Company Number: DE-TEVA-2018-DE-890960

PATIENT
  Sex: Female

DRUGS (1)
  1. COPAXONE [Suspect]
     Active Substance: GLATIRAMER ACETATE
     Indication: MULTIPLE SCLEROSIS
     Dates: start: 20160901

REACTIONS (4)
  - Multiple sclerosis [Unknown]
  - Pain in extremity [Unknown]
  - Multiple sclerosis relapse [Recovering/Resolving]
  - Language disorder [Recovering/Resolving]

NARRATIVE: CASE EVENT DATE: 2017
